FAERS Safety Report 8877690 (Version 1)
Quarter: 2012Q4

REPORT INFORMATION
  Report Type: 
  Country: DE (occurrence: DE)
  Receive Date: 20121024
  Receipt Date: 20121024
  Transmission Date: 20130627
  Serious: Yes (Other)
  Sender: FDA-Public Use
  Company Number: PHHY2012DE094635

PATIENT
  Sex: Female

DRUGS (2)
  1. ILARIS [Suspect]
     Indication: JUVENILE ARTHRITIS
     Dosage: 150 mg, every four weeks
     Route: 058
     Dates: start: 201109
  2. ARCOXIA [Concomitant]
     Dosage: 90 mg, UNK
     Route: 048

REACTIONS (3)
  - Back pain [Recovering/Resolving]
  - Inflammation [Recovering/Resolving]
  - Osteomyelitis [Recovering/Resolving]
